FAERS Safety Report 16366144 (Version 1)
Quarter: 2019Q3

REPORT INFORMATION
  Report Type: Spontaneous
  Country: US (occurrence: US)
  Receive Date: 20190528
  Receipt Date: 20190528
  Transmission Date: 20191004
  Serious: No
  Sender: FDA-Public Use
  Company Number: None

PATIENT
  Age: 69 Year
  Sex: Female
  Weight: 71.55 kg

DRUGS (4)
  1. ARED2 [Concomitant]
  2. FISH OIL [Concomitant]
     Active Substance: FISH OIL
  3. LOSARTAN POTASSIUM. [Suspect]
     Active Substance: LOSARTAN POTASSIUM
     Indication: HYPERTENSION
     Dosage: ?          QUANTITY:90 TABLET(S);?
     Route: 048
     Dates: start: 20180930, end: 20190527
  4. CALCIUM [Concomitant]
     Active Substance: CALCIUM

REACTIONS (3)
  - Suspected product quality issue [None]
  - Gastrointestinal disorder [None]
  - Recalled product [None]

NARRATIVE: CASE EVENT DATE: 20190415
